FAERS Safety Report 9626970 (Version 1)
Quarter: 2013Q4

REPORT INFORMATION
  Report Type: Spontaneous
  Country: US (occurrence: None)
  Receive Date: 20131011
  Receipt Date: 20131011
  Transmission Date: 20140711
  Serious: Yes (Hospitalization)
  Sender: FDA-Public Use
  Company Number: AUR-APL-2013-07743

PATIENT
  Age: 19 Year
  Sex: Female

DRUGS (2)
  1. PIPERACILLIN+TAZOBACTAM (PIPERACILLIN, TAZOBACTAM) [Suspect]
     Indication: CYSTIC FIBROSIS
     Route: 042
  2. CIPROFLOXACIN (CIPROFLOXACIN) [Concomitant]

REACTIONS (8)
  - Haemolytic anaemia [None]
  - Tachycardia [None]
  - Drug specific antibody present [None]
  - Myalgia [None]
  - Headache [None]
  - Pyrexia [None]
  - Fatigue [None]
  - Chest pain [None]
